FAERS Safety Report 6888650-4 (Version None)
Quarter: 2010Q3

REPORT INFORMATION
  Report Type: 
  Country: None (occurrence: None)
  Receive Date: 20100730
  Receipt Date: 20071008
  Transmission Date: 20110219
  Serious: No
  Sender: FDA-Public Use
  Company Number: US-PFIZER INC-2007085615

PATIENT
  Sex: Female
  Weight: 55.34 kg

DRUGS (4)
  1. LIPITOR [Suspect]
     Indication: BLOOD CHOLESTEROL INCREASED
     Dates: start: 20060401, end: 20070401
  2. FOSAMAX [Concomitant]
  3. FEMARA [Concomitant]
  4. VITAMINS [Concomitant]

REACTIONS (2)
  - FATIGUE [None]
  - PAIN [None]
